FAERS Safety Report 7568279-5 (Version None)
Quarter: 2011Q2

REPORT INFORMATION
  Report Type: 
  Country: None (occurrence: None)
  Receive Date: 20110623
  Receipt Date: 20110608
  Transmission Date: 20111010
  Serious: Yes (Hospitalization, Other)
  Sender: FDA-Public Use
  Company Number: US-JNJFOC-20110608964

PATIENT
  Age: 62 Year
  Sex: Female

DRUGS (11)
  1. AZATHIOPRINE [Concomitant]
     Dates: start: 20090108, end: 20090526
  2. REMICADE [Suspect]
     Route: 042
     Dates: start: 20090311
  3. ASACOL [Concomitant]
     Dates: start: 20081130, end: 20090515
  4. REMICADE [Suspect]
     Route: 042
     Dates: start: 20090422
  5. REMICADE [Suspect]
     Route: 042
     Dates: start: 20090325
  6. PREDNISONE [Concomitant]
     Dates: start: 20081213, end: 20090331
  7. METHYLPREDNISOLONE [Concomitant]
  8. REMICADE [Suspect]
     Route: 042
     Dates: start: 20090818
  9. REMICADE [Suspect]
     Indication: PRODUCT USED FOR UNKNOWN INDICATION
     Route: 042
     Dates: start: 20090629
  10. REMICADE [Suspect]
     Route: 042
     Dates: start: 20091014
  11. REMICADE [Suspect]
     Route: 042
     Dates: start: 20091208

REACTIONS (2)
  - PROGRESSIVE MULTIFOCAL LEUKOENCEPHALOPATHY [None]
  - MULTIPLE SCLEROSIS [None]
